FAERS Safety Report 16117888 (Version 1)
Quarter: 2019Q1

REPORT INFORMATION
  Report Type: Spontaneous
  Country: FR (occurrence: FR)
  Receive Date: 20190326
  Receipt Date: 20190326
  Transmission Date: 20190418
  Serious: Yes (Hospitalization)
  Sender: FDA-Public Use
  Company Number: FR-TEVA-2019-FR-1030013

PATIENT
  Age: 69 Year
  Sex: Female
  Weight: 62 kg

DRUGS (2)
  1. CORTANCYL 1 MG, COMPRIM? [Suspect]
     Active Substance: PREDNISONE
     Indication: RHEUMATOID ARTHRITIS
     Dosage: 3 MILLIGRAM DAILY;
     Route: 048
  2. METHOTREXATE. [Suspect]
     Active Substance: METHOTREXATE
     Indication: RHEUMATOID ARTHRITIS
     Route: 065

REACTIONS (3)
  - Confusional state [Recovering/Resolving]
  - Pyrexia [Recovering/Resolving]
  - Erysipelas [Not Recovered/Not Resolved]

NARRATIVE: CASE EVENT DATE: 20180627
